FAERS Safety Report 7636723-0 (Version None)
Quarter: 2011Q3

REPORT INFORMATION
  Report Type: 
  Country: None (occurrence: None)
  Receive Date: 20110722
  Receipt Date: 20110722
  Transmission Date: 20111222
  Serious: No
  Sender: FDA-Public Use
  Company Number: None

PATIENT
  Age: 44 Year
  Sex: Female
  Weight: 53.5244 kg

DRUGS (1)
  1. SAVELLA [Suspect]
     Indication: FIBROMYALGIA
     Dosage: SAVELLA 100 MG Q HS PO
     Route: 048
     Dates: start: 20110101, end: 20110501

REACTIONS (2)
  - HYPERTENSION [None]
  - SINUS TACHYCARDIA [None]
